FAERS Safety Report 21404462 (Version 2)
Quarter: 2022Q4

REPORT INFORMATION
  Report Type: Spontaneous
  Country: IN (occurrence: IN)
  Receive Date: 20221003
  Receipt Date: 20221006
  Transmission Date: 20230113
  Serious: Yes (Other)
  Sender: FDA-Public Use
  Company Number: IN-PFIZER INC-2020080730

PATIENT
  Age: 58 Year
  Sex: Female

DRUGS (5)
  1. PALBOCICLIB [Suspect]
     Active Substance: PALBOCICLIB
     Indication: Breast cancer metastatic
     Dosage: 125 MG, 1X/DAY
     Route: 048
     Dates: start: 201911
  2. PALBOCICLIB [Suspect]
     Active Substance: PALBOCICLIB
     Dosage: 125 MG, CYCLIC 1X/DAY (1 DAILY FOR 21 DAYS IN A MONTH FOR 3 MONTHS)
     Dates: start: 20191210
  3. PALBOCICLIB [Suspect]
     Active Substance: PALBOCICLIB
     Dosage: 100 MG, CYCLIC (DAILY FOR 21 DAYS IN A MONTH FOR 6 MONTHS)
     Route: 048
  4. FULVESTRANT [Concomitant]
     Active Substance: FULVESTRANT
     Dosage: 500 MG, 3 TIMES MONTHLY (D1, D15, D30)
     Route: 030
  5. FULVESTRANT [Concomitant]
     Active Substance: FULVESTRANT
     Dosage: 500 MG, MONTHLY (INJECTION)
     Route: 030

REACTIONS (13)
  - Platelet count decreased [Unknown]
  - Pleural effusion [Unknown]
  - Nausea [Unknown]
  - Cough [Unknown]
  - Atelectasis [Unknown]
  - White blood cell count decreased [Unknown]
  - Bacterial test positive [Unknown]
  - White blood cells urine positive [Unknown]
  - Haemoglobin decreased [Unknown]
  - Inappropriate schedule of product administration [Unknown]
  - Off label use [Unknown]
  - Uterine leiomyoma [Unknown]
  - Neoplasm progression [Unknown]

NARRATIVE: CASE EVENT DATE: 20200820
